FAERS Safety Report 7493718-8 (Version None)
Quarter: 2011Q2

REPORT INFORMATION
  Report Type: 
  Country: None (occurrence: None)
  Receive Date: 20110520
  Receipt Date: 20110509
  Transmission Date: 20111010
  Serious: Yes (Life-Threatening)
  Sender: FDA-Public Use
  Company Number: GB-PFIZER INC-2011098891

PATIENT
  Age: 66 Year
  Sex: Male

DRUGS (10)
  1. DAUNORUBICIN HCL [Suspect]
     Dosage: UNK
     Dates: start: 20110404, end: 20110412
  2. AMBISOME [Suspect]
     Dosage: 150 MG, UNK
     Dates: start: 20110426, end: 20110503
  3. CYTARABINE [Suspect]
     Dosage: UNK
     Dates: start: 20110404, end: 20110412
  4. GENTAMICIN [Concomitant]
     Dosage: 300 MG, UNK
     Dates: start: 20110426, end: 20110502
  5. MULTI-VITAMINS [Concomitant]
     Dosage: 1 DF, UNK
     Dates: start: 20110427, end: 20110502
  6. LEVOTHYROXINE [Concomitant]
     Dosage: 150 MCG, UNK
     Dates: start: 20110426, end: 20110502
  7. GEMTUZUMAB OZOGAMICIN [Suspect]
     Dosage: 3 MG/M2, UNK
     Dates: start: 20110404, end: 20110412
  8. ETOPOSIDE [Suspect]
     Dosage: UNK
     Dates: start: 20110404, end: 20110412
  9. ONDANSETRON [Concomitant]
     Dosage: 4 MG, UNK
     Dates: start: 20110428
  10. D3-VICOTRAT [Concomitant]
     Dosage: 2 DF, UNK
     Dates: start: 20110427, end: 20110502

REACTIONS (1)
  - HYPOKALAEMIA [None]
